FAERS Safety Report 7375467-X (Version None)
Quarter: 2011Q1

REPORT INFORMATION
  Report Type: 
  Country: None (occurrence: None)
  Receive Date: 20110325
  Receipt Date: 20110315
  Transmission Date: 20110831
  Serious: Yes (Other)
  Sender: FDA-Public Use
  Company Number: DE-MILLENNIUM PHARMACEUTICALS, INC.-2011-01096

PATIENT

DRUGS (12)
  1. VELCADE [Suspect]
     Indication: MULTIPLE MYELOMA
     Dosage: 1.3 MG/M2, CYCLIC
     Route: 042
     Dates: start: 20110104, end: 20110303
  2. MELPHALAN [Concomitant]
     Indication: MULTIPLE MYELOMA
     Dosage: 9 MG/M2, UNK
     Dates: start: 20110101
  3. BELOC ZOK [Concomitant]
  4. LACTULOSE [Concomitant]
  5. KALINOR                            /00031402/ [Concomitant]
  6. EMBOLEX [Concomitant]
  7. TORASEMID [Concomitant]
  8. ACYCLOVIR [Concomitant]
  9. ATACAND [Concomitant]
  10. PANTOZOL                           /01263202/ [Concomitant]
  11. HYDROMORPHONE HCL [Concomitant]
  12. PREDNISONE [Concomitant]
     Indication: MULTIPLE MYELOMA
     Dosage: 60 MG/M2, UNK
     Dates: start: 20110101

REACTIONS (4)
  - TROPONIN I INCREASED [None]
  - BRAIN NATRIURETIC PEPTIDE INCREASED [None]
  - PERICARDIAL EFFUSION [None]
  - THROMBOCYTOPENIA [None]
